FAERS Safety Report 20619805 (Version 2)
Quarter: 2022Q1

REPORT INFORMATION
  Report Type: Spontaneous
  Country: US (occurrence: US)
  Receive Date: 20220322
  Receipt Date: 20220330
  Transmission Date: 20220423
  Serious: No
  Sender: FDA-Public Use
  Company Number: US-ORGANON-O2203USA001842

PATIENT
  Age: 19 Year
  Sex: Female

DRUGS (1)
  1. NEXPLANON [Suspect]
     Active Substance: ETONOGESTREL
     Dosage: 1 IMPLANT ON RIGHT UPPER ARM
     Route: 059
     Dates: start: 2019

REACTIONS (1)
  - Complication associated with device [Unknown]

NARRATIVE: CASE EVENT DATE: 20220316
